FAERS Safety Report 4281767-2 (Version None)
Quarter: 2004Q1

REPORT INFORMATION
  Report Type: 
  Country: None (occurrence: None)
  Receive Date: 20040128
  Receipt Date: 20040115
  Transmission Date: 20041129
  Serious: Yes (Other)
  Sender: FDA-Public Use
  Company Number: 2003175485SE

PATIENT
  Age: 50 Year
  Sex: Female

DRUGS (3)
  1. NICORETTE [Suspect]
     Dosage: 80 MG, QD, BUCCAL
     Route: 002
     Dates: start: 20021101, end: 20030101
  2. ZYPREXA [Concomitant]
  3. SEROXAT ^NOVO NORDISK^ (PAROXETINE HYDROCHLORIDE) [Concomitant]

REACTIONS (2)
  - DEPENDENCE [None]
  - OVERDOSE [None]
